FAERS Safety Report 19188534 (Version 1)
Quarter: 2021Q2

REPORT INFORMATION
  Report Type: Report from Study
  Country: None (occurrence: CA)
  Receive Date: 20210427
  Receipt Date: 20210427
  Transmission Date: 20210717
  Serious: Yes (Other)
  Sender: FDA-Public Use
  Company Number: CA-ABBVIE-21K-028-3874573-00

PATIENT
  Age: 62 Year
  Sex: Female

DRUGS (5)
  1. PFIZER?BIONTECH COVID?19 VACCINE [Suspect]
     Active Substance: TOZINAMERAN
     Indication: COVID-19 IMMUNISATION
     Dosage: PFIZER
     Route: 030
     Dates: start: 20210416, end: 20210416
  2. SYNTHROID [Concomitant]
     Active Substance: LEVOTHYROXINE SODIUM
     Indication: PRODUCT USED FOR UNKNOWN INDICATION
  3. RINVOQ [Suspect]
     Active Substance: UPADACITINIB
     Indication: RHEUMATOID ARTHRITIS
     Route: 048
  4. SPIRONOLACTONE. [Concomitant]
     Active Substance: SPIRONOLACTONE
     Indication: BLOOD PRESSURE MANAGEMENT
  5. CRESTOR [Suspect]
     Active Substance: ROSUVASTATIN CALCIUM
     Indication: PRODUCT USED FOR UNKNOWN INDICATION
     Route: 065
     Dates: start: 202102, end: 202102

REACTIONS (11)
  - Palpitations [Recovered/Resolved]
  - Chest pain [Unknown]
  - Malaise [Unknown]
  - Migraine [Unknown]
  - Nausea [Unknown]
  - Dysphagia [Recovered/Resolved]
  - Pain in extremity [Unknown]
  - Pharyngeal swelling [Recovered/Resolved]
  - Feeling abnormal [Unknown]
  - Ophthalmic migraine [Unknown]
  - Central vision loss [Recovered/Resolved]

NARRATIVE: CASE EVENT DATE: 2021
